FAERS Safety Report 23233166 (Version 9)
Quarter: 2025Q2

REPORT INFORMATION
  Report Type: Spontaneous
  Country: JP (occurrence: JP)
  Receive Date: 20231128
  Receipt Date: 20250613
  Transmission Date: 20250716
  Serious: Yes (Hospitalization, Disabling, Other)
  Sender: BRISTOL-MYERS SQUIBB COMPANY
  Company Number: JP-BRISTOL-MYERS SQUIBB COMPANY-2023-170013

PATIENT
  Age: 79 Year
  Sex: Male
  Weight: 48 kg

DRUGS (11)
  1. YERVOY [Suspect]
     Active Substance: IPILIMUMAB
     Indication: Pleural mesothelioma malignant
     Route: 041
     Dates: start: 20230704
  2. OPDIVO [Suspect]
     Active Substance: NIVOLUMAB
     Indication: Pleural mesothelioma malignant
     Route: 041
     Dates: start: 20230704
  3. AZOSEMIDE [Concomitant]
     Active Substance: AZOSEMIDE
     Indication: Product used for unknown indication
     Dosage: 1 TAB
     Route: 048
  4. AMLODIPINE [Concomitant]
     Active Substance: AMLODIPINE BESYLATE
     Indication: Product used for unknown indication
     Dosage: 1 TAB
     Route: 048
  5. ESOMEPRAZOLE MAGNESIUM [Concomitant]
     Active Substance: ESOMEPRAZOLE MAGNESIUM
     Indication: Product used for unknown indication
     Dosage: 1 TAB
     Route: 048
  6. XARELTO [Concomitant]
     Active Substance: RIVAROXABAN
     Indication: Product used for unknown indication
     Dosage: 1 TAB
     Route: 048
  7. NITROGLYCERIN [Concomitant]
     Active Substance: NITROGLYCERIN
     Indication: Product used for unknown indication
     Dosage: PATCH, 1 PIECE
  8. TRAVOPROST [Concomitant]
     Active Substance: TRAVOPROST
     Indication: Product used for unknown indication
     Dosage: 1 DROP
     Route: 047
  9. HYALURONATE SODIUM [Concomitant]
     Active Substance: HYALURONATE SODIUM
     Indication: Product used for unknown indication
     Dosage: 1 DROP
     Route: 047
  10. BENSERAZIDE HYDROCHLORIDE\LEVODOPA [Concomitant]
     Active Substance: BENSERAZIDE HYDROCHLORIDE\LEVODOPA
     Indication: Product used for unknown indication
     Dosage: 1 TAB
     Route: 048
  11. MAGNESIUM OXIDE [Concomitant]
     Active Substance: MAGNESIUM OXIDE
     Indication: Product used for unknown indication
     Dosage: 1 TAB
     Route: 048

REACTIONS (9)
  - Immune-mediated scleritis [Recovered/Resolved with Sequelae]
  - Pyrexia [Recovered/Resolved]
  - Immune-mediated lung disease [Recovered/Resolved]
  - Immune-mediated hepatic disorder [Recovered/Resolved]
  - Renal impairment [Recovered/Resolved]
  - Orbital haemorrhage [Recovered/Resolved with Sequelae]
  - Blindness unilateral [Unknown]
  - Glomerular filtration rate decreased [Unknown]
  - Infective spondylitis [Unknown]

NARRATIVE: CASE EVENT DATE: 20230704
